FAERS Safety Report 17244469 (Version 5)
Quarter: 2021Q2

REPORT INFORMATION
  Report Type: Spontaneous
  Country: US (occurrence: US)
  Receive Date: 20200107
  Receipt Date: 20210629
  Transmission Date: 20210716
  Serious: Yes (Other)
  Sender: FDA-Public Use
  Company Number: US-GILEAD-2020-0445093

PATIENT
  Age: 69 Year
  Sex: Male
  Weight: 117.91 kg

DRUGS (36)
  1. CRIXIVAN [Concomitant]
     Active Substance: INDINAVIR SULFATE
  2. RETROVIR [Concomitant]
     Active Substance: ZIDOVUDINE
  3. SUSTIVA [Concomitant]
     Active Substance: EFAVIRENZ
  4. AVALIDE [Concomitant]
     Active Substance: HYDROCHLOROTHIAZIDE\IRBESARTAN
  5. GLUCOPHAGE [Concomitant]
     Active Substance: METFORMIN HYDROCHLORIDE
  6. LANTUS [Concomitant]
     Active Substance: INSULIN GLARGINE
  7. ASPIRIN (E.C.) [Concomitant]
     Active Substance: ASPIRIN
  8. MELOXICAM. [Concomitant]
     Active Substance: MELOXICAM
  9. TRIUMEQ [Concomitant]
     Active Substance: ABACAVIR SULFATE\DOLUTEGRAVIR SODIUM\LAMIVUDINE
  10. VIDEX EC [Concomitant]
     Active Substance: DIDANOSINE
  11. AVAPRO [Concomitant]
     Active Substance: IRBESARTAN
  12. METFORMIN HCL [Concomitant]
     Active Substance: METFORMIN HYDROCHLORIDE
  13. TORSEMIDE. [Concomitant]
     Active Substance: TORSEMIDE
  14. SODIUM BICARBONATE. [Concomitant]
     Active Substance: SODIUM BICARBONATE
  15. VIRAMUNE XR [Concomitant]
     Active Substance: NEVIRAPINE
  16. LIPITOR [Concomitant]
     Active Substance: ATORVASTATIN CALCIUM
  17. ACTOS [Concomitant]
     Active Substance: PIOGLITAZONE HYDROCHLORIDE
  18. TOPROL XL [Concomitant]
     Active Substance: METOPROLOL SUCCINATE
  19. DEMADEX [Concomitant]
     Active Substance: TORSEMIDE
  20. PREDNISOLONE. [Concomitant]
     Active Substance: PREDNISOLONE
  21. TYLENOL [Concomitant]
     Active Substance: ACETAMINOPHEN
  22. LOPRESSOR [Concomitant]
     Active Substance: METOPROLOL TARTRATE
  23. NORVASC [Concomitant]
     Active Substance: AMLODIPINE BESYLATE
  24. GLIPIZIDE. [Concomitant]
     Active Substance: GLIPIZIDE
  25. IRBESARTAN. [Concomitant]
     Active Substance: IRBESARTAN
  26. BASAGLAR KWIKPEN [Concomitant]
     Active Substance: INSULIN GLARGINE
  27. ACETAMINOPHEN. [Concomitant]
     Active Substance: ACETAMINOPHEN
  28. JANUVIA [Concomitant]
     Active Substance: SITAGLIPTIN PHOSPHATE
  29. ATRIPLA [Suspect]
     Active Substance: EFAVIRENZ\EMTRICITABINE\TENOFOVIR DISOPROXIL FUMARATE
     Indication: HIV INFECTION
     Dosage: UNK
     Route: 048
     Dates: start: 200808, end: 20170714
  30. DIOVAN HCT [Concomitant]
     Active Substance: HYDROCHLOROTHIAZIDE\VALSARTAN
  31. GLUCOTROL XL [Concomitant]
     Active Substance: GLIPIZIDE
  32. TERAZOSIN [Concomitant]
     Active Substance: TERAZOSIN HYDROCHLORIDE
  33. ATRIPLA [Suspect]
     Active Substance: EFAVIRENZ\EMTRICITABINE\TENOFOVIR DISOPROXIL FUMARATE
     Dosage: UNK
     Route: 048
     Dates: start: 20071210, end: 20160930
  34. COMBIVIR [Concomitant]
     Active Substance: LAMIVUDINE\ZIDOVUDINE
  35. EPIVIR [Concomitant]
     Active Substance: LAMIVUDINE
  36. CIPROFLOXACIN. [Concomitant]
     Active Substance: CIPROFLOXACIN

REACTIONS (8)
  - Mobility decreased [Unknown]
  - Chronic kidney disease [Not Recovered/Not Resolved]
  - Anxiety [Not Recovered/Not Resolved]
  - Proteinuria [Not Recovered/Not Resolved]
  - Emotional distress [Not Recovered/Not Resolved]
  - Pain [Not Recovered/Not Resolved]
  - Chronic kidney disease [Recovered/Resolved]
  - Anhedonia [Not Recovered/Not Resolved]

NARRATIVE: CASE EVENT DATE: 20150612
